FAERS Safety Report 4927066-4 (Version None)
Quarter: 2006Q1

REPORT INFORMATION
  Report Type: 
  Country: None (occurrence: None)
  Receive Date: 20060228
  Receipt Date: 20051017
  Transmission Date: 20060701
  Serious: Yes (Other)
  Sender: FDA-Public Use
  Company Number: US-GLAXOSMITHKLINE-A0578437A

PATIENT
  Age: 43 Year
  Sex: Female

DRUGS (5)
  1. LAMICTAL [Suspect]
     Indication: BIPOLAR DISORDER
     Route: 048
     Dates: start: 20050318
  2. CONCERTA [Concomitant]
  3. ABILIFY [Concomitant]
  4. ZOLOFT [Concomitant]
  5. KLONOPIN [Concomitant]

REACTIONS (1)
  - LOCALISED OEDEMA [None]
